FAERS Safety Report 5470176-6 (Version None)
Quarter: 2007Q3

REPORT INFORMATION
  Report Type: 
  Country: None (occurrence: None)
  Receive Date: 20070924
  Receipt Date: 20070913
  Transmission Date: 20080115
  Serious: Yes (Hospitalization)
  Sender: FDA-Public Use
  Company Number: CHPA2007US09749

PATIENT
  Age: 7 Year
  Sex: Male
  Weight: 36.3 kg

DRUGS (1)
  1. EX-LAX MAX STR LAX PILLS SENNA (NCH)(SENNA GLYCOSIDES (CA SALTS OF PUR [Suspect]
     Indication: INTESTINAL OBSTRUCTION
     Dosage: 2 TABLETS IN A DAY, ORAL, 25 MG, QID, ORAL
     Route: 048

REACTIONS (2)
  - ABDOMINAL PAIN UPPER [None]
  - DRUG INEFFECTIVE [None]
